FAERS Safety Report 9846043 (Version 2)
Quarter: 2014Q1

REPORT INFORMATION
  Report Type: Spontaneous
  Country: US (occurrence: US)
  Receive Date: 20140127
  Receipt Date: 20140204
  Transmission Date: 20141002
  Serious: No
  Sender: FDA-Public Use
  Company Number: US-GILEAD-2014-0092851

PATIENT
  Sex: Female

DRUGS (2)
  1. LETAIRIS [Suspect]
     Indication: PRODUCT USED FOR UNKNOWN INDICATION
     Dosage: 5 MG, QD
     Route: 065
     Dates: start: 20140116
  2. LETAIRIS [Suspect]
     Dates: start: 20140103

REACTIONS (3)
  - Lacrimation increased [Unknown]
  - Pharyngeal oedema [Unknown]
  - Dyspnoea [Unknown]
